FAERS Safety Report 4523949-8 (Version None)
Quarter: 2004Q4

REPORT INFORMATION
  Report Type: 
  Country: None (occurrence: None)
  Receive Date: 20041209
  Receipt Date: 20041123
  Transmission Date: 20050328
  Serious: No
  Sender: FDA-Public Use
  Company Number: REM_00075_2004

PATIENT
  Age: 12 Year
  Sex: Female
  Weight: 25.5 kg

DRUGS (6)
  1. REMODULIN [Suspect]
     Indication: PULMONARY HYPERTENSION
     Dosage: 114 NG/KG/MIN CONTINUOUS IV
     Route: 042
     Dates: start: 20040907
  2. DIGOXIN [Concomitant]
  3. LASIX [Concomitant]
  4. SILDENAFIL [Concomitant]
  5. OXYGEN [Concomitant]
  6. HEPARIN [Concomitant]

REACTIONS (11)
  - ACCIDENTAL OVERDOSE [None]
  - BLOOD PRESSURE DECREASED [None]
  - CONVULSION [None]
  - FATIGUE [None]
  - FLUSHING [None]
  - HEADACHE [None]
  - LOSS OF CONSCIOUSNESS [None]
  - MEDICATION ERROR [None]
  - NAUSEA [None]
  - TREATMENT NONCOMPLIANCE [None]
  - VOMITING [None]
